FAERS Safety Report 6967407-X (Version None)
Quarter: 2010Q3

REPORT INFORMATION
  Report Type: 
  Country: None (occurrence: None)
  Receive Date: 20100907
  Receipt Date: 20100827
  Transmission Date: 20110219
  Serious: Yes (Hospitalization, Other)
  Sender: FDA-Public Use
  Company Number: PHHY2010BR58436

PATIENT
  Sex: Female

DRUGS (2)
  1. EXELON [Suspect]
     Dosage: 1.5 MG , UNK
  2. EXELON [Suspect]
     Dosage: 6 MG , UNK

REACTIONS (5)
  - DRUG TOXICITY [None]
  - PAIN [None]
  - SYNCOPE [None]
  - TREMOR [None]
  - VOMITING [None]
